FAERS Safety Report 8589751-5 (Version None)
Quarter: 2012Q3

REPORT INFORMATION
  Report Type: 
  Country: None (occurrence: None)
  Receive Date: 20120813
  Receipt Date: 19930921
  Transmission Date: 20120928
  Serious: Yes (Other)
  Sender: FDA-Public Use
  Company Number: US-ROCHE-1097787

PATIENT
  Age: 54 Year
  Sex: Male

DRUGS (9)
  1. LIDOCAINE [Concomitant]
     Dosage: 1-2 MG PER MINUTE
     Route: 041
  2. HEPARIN [Concomitant]
     Dosage: INCREASED TO 1500 UNITS PER HOUR
  3. ASPIRIN [Concomitant]
     Route: 048
  4. HEPARIN [Concomitant]
     Dosage: 5000 UNITS
     Route: 040
  5. HEPARIN [Concomitant]
     Dosage: 1000 UNITS PER HOUR
  6. MORPHINE SULFATE [Concomitant]
  7. DILANTIN [Concomitant]
     Indication: CONVULSION
  8. NITROGLYCERIN [Concomitant]
     Dosage: GRADUALLY INCREASED TO 100MCG PER MINUTE
     Route: 041
  9. ACTIVASE [Suspect]
     Indication: ACUTE MYOCARDIAL INFARCTION
     Dates: start: 19930528

REACTIONS (8)
  - PLEURITIC PAIN [None]
  - PULMONARY CONGESTION [None]
  - DYSPNOEA [None]
  - PULMONARY OEDEMA [None]
  - CHEST PAIN [None]
  - PRODUCTIVE COUGH [None]
  - BRONCHOSPASM [None]
  - HYPOXIA [None]
